FAERS Safety Report 18917716 (Version 2)
Quarter: 2021Q2

REPORT INFORMATION
  Report Type: Report from Study
  Country: US (occurrence: US)
  Receive Date: 20210219
  Receipt Date: 20210521
  Transmission Date: 20210717
  Serious: Yes (Other)
  Sender: FDA-Public Use
  Company Number: US-ASTRAZENECA-2021A064816

PATIENT
  Age: 19413 Day
  Sex: Female

DRUGS (2)
  1. TAGRISSO [Suspect]
     Active Substance: OSIMERTINIB
     Indication: NON-SMALL CELL LUNG CANCER STAGE IV
     Dosage: UNKNOWN
     Route: 048
     Dates: start: 20200218, end: 20210205
  2. TAGRISSO [Suspect]
     Active Substance: OSIMERTINIB
     Indication: NON-SMALL CELL LUNG CANCER STAGE IV
     Dosage: UNKNOWN
     Route: 048
     Dates: start: 20210218

REACTIONS (12)
  - Pneumonia [Unknown]
  - Weight decreased [Recovering/Resolving]
  - Therapeutic response unexpected [Unknown]
  - Carbohydrate antigen 125 increased [Unknown]
  - Dry skin [Unknown]
  - Carcinoembryonic antigen increased [Recovering/Resolving]
  - Nail disorder [Unknown]
  - Neoplasm progression [Unknown]
  - Dyspnoea [Unknown]
  - Fatigue [Unknown]
  - Central nervous system lesion [Unknown]
  - Lung disorder [Unknown]

NARRATIVE: CASE EVENT DATE: 20210216
